FAERS Safety Report 5404400-2 (Version None)
Quarter: 2007Q3

REPORT INFORMATION
  Report Type: 
  Country: None (occurrence: None)
  Receive Date: 20070711
  Receipt Date: 20061002
  Transmission Date: 20080115
  Serious: Yes (Other)
  Sender: FDA-Public Use
  Company Number: 240635

PATIENT
  Age: 56 Year
  Sex: Female
  Weight: 80.7 kg

DRUGS (6)
  1. ACTIVELLA [Suspect]
     Indication: MENOPAUSAL SYMPTOMS
     Dosage: 1 MG/0.5 MG
     Dates: start: 20000901, end: 20021001
  2. PREMPRO [Suspect]
     Indication: MENOPAUSAL SYMPTOMS
     Dosage: 0.625 MG/2.5 MG
     Dates: start: 19980406, end: 20000901
  3. XANAX [Concomitant]
  4. ASPIRIN [Concomitant]
  5. CALCIUM (CALCIUM) [Concomitant]
  6. VITAMIN E [Concomitant]

REACTIONS (1)
  - BREAST CANCER [None]
